FAERS Safety Report 9209331 (Version 1)
Quarter: 2013Q2

REPORT INFORMATION
  Report Type: Spontaneous
  Country: US (occurrence: None)
  Receive Date: 20130403
  Receipt Date: 20130403
  Transmission Date: 20140414
  Serious: Yes (Hospitalization, Disabling, Congenital Anomaly)
  Sender: FDA-Public Use
  Company Number: None

PATIENT
  Age: 28 Year
  Sex: Female
  Weight: 56.7 kg

DRUGS (8)
  1. GEODON [Suspect]
     Indication: BIPOLAR DISORDER
     Dosage: 1 CAP 2 TIMES A DAY
     Route: 048
     Dates: start: 2003, end: 2010
  2. ABILIFY [Concomitant]
     Route: 048
     Dates: start: 201003
  3. SEROQUEL [Suspect]
  4. RESPERIDOL [Concomitant]
  5. TRAZODONE [Concomitant]
  6. ZYPREXA [Concomitant]
  7. LITHIUM [Concomitant]
  8. WELBUTRYN [Concomitant]

REACTIONS (8)
  - Pain [None]
  - Restlessness [None]
  - Insomnia [None]
  - Muscle spasms [None]
  - Muscle spasms [None]
  - Weight increased [None]
  - Migraine [None]
  - Fibromyalgia [None]
